FAERS Safety Report 6945205-0 (Version None)
Quarter: 2010Q3

REPORT INFORMATION
  Report Type: 
  Country: None (occurrence: None)
  Receive Date: 20100827
  Receipt Date: 20100604
  Transmission Date: 20110219
  Serious: No
  Sender: FDA-Public Use
  Company Number: US-KINGPHARMUSA00001-K201000699

PATIENT
  Sex: Female

DRUGS (2)
  1. FLECTOR [Suspect]
     Indication: SPINAL DISORDER
     Dosage: UNK
  2. FLECTOR [Suspect]
     Indication: BONE PAIN
     Dosage: 1 PATCH, SINGLE
     Dates: start: 20100603

REACTIONS (1)
  - DRUG INEFFECTIVE [None]
